FAERS Safety Report 12622455 (Version 2)
Quarter: 2016Q3

REPORT INFORMATION
  Report Type: Report from Study
  Country: BR (occurrence: BR)
  Receive Date: 20160804
  Receipt Date: 20160817
  Transmission Date: 20161109
  Serious: Yes (Other)
  Sender: FDA-Public Use
  Company Number: PHHY2016BR106528

PATIENT
  Sex: Female
  Weight: 96 kg

DRUGS (4)
  1. ONBREZ BREEZHALER [Suspect]
     Active Substance: INDACATEROL
     Indication: EMPHYSEMA
     Dosage: 150 UG (1 CAPSULE), QD (4 MOTHS AGO)
     Route: 055
  2. ONBREZ BREEZHALER [Suspect]
     Active Substance: INDACATEROL
     Dosage: 300 UG (1 CAPSULE), QD
     Route: 055
  3. SEEBRI BREEZHALER [Suspect]
     Active Substance: GLYCOPYRROLATE
     Indication: EMPHYSEMA
     Dosage: 50 UG, QD
     Route: 055
  4. BAMIFIX [Concomitant]
     Active Substance: BAMIFYLLINE HYDROCHLORIDE
     Indication: EMPHYSEMA
     Dosage: 1 DF (600 MG), QD (4 MONTHS AGO)
     Route: 048

REACTIONS (4)
  - Dyspnoea [Unknown]
  - Incorrect dose administered [Unknown]
  - Drug dependence [Unknown]
  - Fear [Unknown]
